FAERS Safety Report 7119273-X (Version None)
Quarter: 2010Q4

REPORT INFORMATION
  Report Type: 
  Country: None (occurrence: None)
  Receive Date: 20101123
  Receipt Date: 20101111
  Transmission Date: 20110411
  Serious: Yes (Hospitalization)
  Sender: FDA-Public Use
  Company Number: US-ELI_LILLY_AND_COMPANY-US201010002062

PATIENT
  Sex: Female

DRUGS (2)
  1. HUMULIN N [Suspect]
     Dosage: 60 U, EACH MORNING
     Dates: start: 19910901
  2. HUMULIN N [Suspect]
     Dosage: 40 U, EACH EVENING
     Dates: start: 19910901

REACTIONS (7)
  - ANGIOPATHY [None]
  - BLOOD GLUCOSE DECREASED [None]
  - BLOOD GLUCOSE INCREASED [None]
  - DRUG DOSE OMISSION [None]
  - DRUG INEFFECTIVE [None]
  - EYE OPERATION [None]
  - VISUAL ACUITY REDUCED [None]
